FAERS Safety Report 16651600 (Version 3)
Quarter: 2020Q1

REPORT INFORMATION
  Report Type: Spontaneous
  Country: HR (occurrence: HR)
  Receive Date: 20190731
  Receipt Date: 20200205
  Transmission Date: 20200409
  Serious: Yes (Hospitalization, Other)
  Sender: FDA-Public Use
  Company Number: HR-JNJFOC-20190733444

PATIENT
  Sex: Female

DRUGS (4)
  1. RIVAROXABAN [Suspect]
     Active Substance: RIVAROXABAN
     Indication: DEEP VEIN THROMBOSIS
     Dosage: 15 MG, BID
     Route: 048
     Dates: start: 20190708
  2. DALTEPARIN [Concomitant]
     Active Substance: DALTEPARIN
     Dosage: 7500 IU
  3. CONTROLOC [Concomitant]
     Active Substance: PANTOPRAZOLE SODIUM
     Indication: GASTRITIS
     Dosage: UNK
     Dates: start: 2017
  4. RIVAROXABAN [Suspect]
     Active Substance: RIVAROXABAN
     Route: 048
     Dates: start: 2019

REACTIONS (14)
  - Vertigo [Unknown]
  - Dyspnoea [Unknown]
  - Epigastric discomfort [Unknown]
  - Large intestinal stenosis [Unknown]
  - Chronic gastritis [Unknown]
  - Chest pain [Unknown]
  - Dizziness [Unknown]
  - Adenocarcinoma of colon [Unknown]
  - Haemoglobin decreased [Unknown]
  - Faeces discoloured [Unknown]
  - Diarrhoea [Unknown]
  - Asthenia [Unknown]
  - Malaise [Unknown]
  - Nausea [Unknown]

NARRATIVE: CASE EVENT DATE: 2019
